FAERS Safety Report 4626081-8 (Version None)
Quarter: 2005Q2

REPORT INFORMATION
  Report Type: 
  Country: None (occurrence: None)
  Receive Date: 20050404
  Receipt Date: 20050328
  Transmission Date: 20051028
  Serious: Yes (Life-Threatening, Disabling)
  Sender: FDA-Public Use
  Company Number: US-MERCK-0503USA04926

PATIENT
  Age: 80 Year
  Sex: Female

DRUGS (4)
  1. VYTORIN [Suspect]
     Indication: BLOOD CHOLESTEROL INCREASED
     Route: 048
     Dates: start: 20050301, end: 20050301
  2. NEXIUM [Concomitant]
     Route: 065
  3. AMARYL [Concomitant]
     Route: 065
  4. AVANDIA [Concomitant]
     Route: 065

REACTIONS (2)
  - FEELING ABNORMAL [None]
  - VOMITING [None]
